FAERS Safety Report 9344602 (Version 1)
Quarter: 2013Q2

REPORT INFORMATION
  Report Type: Spontaneous
  Country: US (occurrence: US)
  Receive Date: 20130612
  Receipt Date: 20130612
  Transmission Date: 20140414
  Serious: Yes (Death, Life-Threatening)
  Sender: FDA-Public Use
  Company Number: US-ROXANE LABORATORIES, INC.-2013-RO-00923RO

PATIENT
  Sex: Female

DRUGS (3)
  1. CYCLOPHOSPHAMIDE TABLETS USP [Suspect]
     Indication: BREAST CANCER STAGE III
  2. TAXOTERE [Suspect]
     Indication: BREAST CANCER STAGE III
  3. EPIRUBICIN [Suspect]
     Indication: BREAST CANCER STAGE III

REACTIONS (6)
  - Acute hepatic failure [Fatal]
  - Hepatitis B [Unknown]
  - Coagulopathy [Unknown]
  - Retroperitoneal haemorrhage [Unknown]
  - Coma hepatic [Unknown]
  - Hepatorenal syndrome [Unknown]
